FAERS Safety Report 6502898-X (Version None)
Quarter: 2009Q4

REPORT INFORMATION
  Report Type: 
  Country: None (occurrence: None)
  Receive Date: 20091201
  Receipt Date: 20081209
  Transmission Date: 20100525
  Serious: Yes (Hospitalization)
  Sender: FDA-Public Use
  Company Number: 182366USA

PATIENT
  Sex: Male

DRUGS (1)
  1. GEMFIBROZIL [Suspect]
     Indication: BLOOD CHOLESTEROL INCREASED
     Dosage: (600 MG), ORAL
     Route: 048
     Dates: start: 20010101

REACTIONS (1)
  - MYALGIA [None]
